FAERS Safety Report 6001543-X (Version None)
Quarter: 2008Q4

REPORT INFORMATION
  Report Type: 
  Country: None (occurrence: None)
  Receive Date: 20081215
  Receipt Date: 20071106
  Transmission Date: 20090506
  Serious: No
  Sender: FDA-Public Use
  Company Number: US-AMGEN-KDL251479

PATIENT
  Sex: Male

DRUGS (2)
  1. ENBREL [Suspect]
     Indication: RHEUMATOID ARTHRITIS
     Route: 058
     Dates: start: 19981101
  2. METHOTREXATE [Concomitant]
     Route: 048
     Dates: start: 20070401

REACTIONS (7)
  - ERYTHEMA [None]
  - INFLAMMATION [None]
  - LOCAL SWELLING [None]
  - NODULE [None]
  - RHEUMATOID NODULE [None]
  - TENDERNESS [None]
  - WOUND SECRETION [None]
